FAERS Safety Report 5919949-3 (Version None)
Quarter: 2008Q3

REPORT INFORMATION
  Report Type: 
  Country: None (occurrence: None)
  Receive Date: 20080909
  Receipt Date: 20070817
  Transmission Date: 20090109
  Serious: Yes (Hospitalization)
  Sender: FDA-Public Use
  Company Number: 163-20785-07070235

PATIENT
  Age: 71 Year
  Sex: Female

DRUGS (15)
  1. THALOMID [Suspect]
     Indication: CHROMOSOME ANALYSIS ABNORMAL
     Dosage: 50 MG, DAILY, ORAL ; 100 MG, DAILY, ORAL ; 150 MG, DAILY, ORAL ; 50 MG, DAILY, ORAL
     Route: 048
     Dates: start: 20070524, end: 20070530
  2. THALOMID [Suspect]
     Indication: MULTIPLE MYELOMA
     Dosage: 50 MG, DAILY, ORAL ; 100 MG, DAILY, ORAL ; 150 MG, DAILY, ORAL ; 50 MG, DAILY, ORAL
     Route: 048
     Dates: start: 20070524, end: 20070530
  3. THALOMID [Suspect]
     Indication: CHROMOSOME ANALYSIS ABNORMAL
     Dosage: 50 MG, DAILY, ORAL ; 100 MG, DAILY, ORAL ; 150 MG, DAILY, ORAL ; 50 MG, DAILY, ORAL
     Route: 048
     Dates: start: 20070531, end: 20070606
  4. THALOMID [Suspect]
     Indication: MULTIPLE MYELOMA
     Dosage: 50 MG, DAILY, ORAL ; 100 MG, DAILY, ORAL ; 150 MG, DAILY, ORAL ; 50 MG, DAILY, ORAL
     Route: 048
     Dates: start: 20070531, end: 20070606
  5. THALOMID [Suspect]
     Indication: CHROMOSOME ANALYSIS ABNORMAL
     Dosage: 50 MG, DAILY, ORAL ; 100 MG, DAILY, ORAL ; 150 MG, DAILY, ORAL ; 50 MG, DAILY, ORAL
     Route: 048
     Dates: start: 20070607, end: 20070625
  6. THALOMID [Suspect]
     Indication: MULTIPLE MYELOMA
     Dosage: 50 MG, DAILY, ORAL ; 100 MG, DAILY, ORAL ; 150 MG, DAILY, ORAL ; 50 MG, DAILY, ORAL
     Route: 048
     Dates: start: 20070607, end: 20070625
  7. THALOMID [Suspect]
     Indication: CHROMOSOME ANALYSIS ABNORMAL
     Dosage: 50 MG, DAILY, ORAL ; 100 MG, DAILY, ORAL ; 150 MG, DAILY, ORAL ; 50 MG, DAILY, ORAL
     Route: 048
     Dates: start: 20070709
  8. THALOMID [Suspect]
     Indication: MULTIPLE MYELOMA
     Dosage: 50 MG, DAILY, ORAL ; 100 MG, DAILY, ORAL ; 150 MG, DAILY, ORAL ; 50 MG, DAILY, ORAL
     Route: 048
     Dates: start: 20070709
  9. DECADRON [Suspect]
     Indication: DRUG USE FOR UNKNOWN INDICATION
  10. PAMIDRONATE DISODIUM [Suspect]
     Indication: BONE LESION
     Dosage: 90 MG MONTHLY, INTRAVENOUS
     Route: 042
     Dates: start: 20070620, end: 20070620
  11. COUMADIN [Concomitant]
  12. PROTONIX [Concomitant]
  13. PHYTONADIONE [Concomitant]
  14. LIPITOR [Concomitant]
  15. CLARITIN [Concomitant]

REACTIONS (11)
  - ABDOMINAL DISTENSION [None]
  - BALANCE DISORDER [None]
  - HAIR GROWTH ABNORMAL [None]
  - JOINT SWELLING [None]
  - NAIL GROWTH ABNORMAL [None]
  - OEDEMA PERIPHERAL [None]
  - PAIN OF SKIN [None]
  - PRURITUS [None]
  - RASH [None]
  - SYNCOPE [None]
  - URTICARIA [None]
